FAERS Safety Report 19768163 (Version 2)
Quarter: 2021Q3

REPORT INFORMATION
  Report Type: Spontaneous
  Country: JP (occurrence: JP)
  Receive Date: 20210830
  Receipt Date: 20210916
  Transmission Date: 20211014
  Serious: Yes (Other)
  Sender: FDA-Public Use
  Company Number: JP-009507513-2108JPN001827J

PATIENT
  Sex: Female

DRUGS (1)
  1. KEYTRUDA [Suspect]
     Active Substance: PEMBROLIZUMAB
     Indication: MICROSATELLITE INSTABILITY CANCER
     Dosage: 200 MILLIGRAM, Q3W
     Route: 041
     Dates: start: 202011, end: 202106

REACTIONS (1)
  - Immune-mediated arthritis [Recovering/Resolving]

NARRATIVE: CASE EVENT DATE: 202106
